FAERS Safety Report 15116338 (Version 1)
Quarter: 2018Q3

REPORT INFORMATION
  Report Type: Spontaneous
  Country: ES (occurrence: ES)
  Receive Date: 20180706
  Receipt Date: 20180706
  Transmission Date: 20181010
  Serious: Yes (Other)
  Sender: FDA-Public Use
  Company Number: ES-SA-2018SA174834

PATIENT
  Age: 62 Year
  Sex: Female

DRUGS (4)
  1. IRINOTECAN [Suspect]
     Active Substance: IRINOTECAN
     Dosage: UNK
     Route: 042
     Dates: start: 20170511
  2. ZALTRAP [Suspect]
     Active Substance: ZIV-AFLIBERCEPT
     Dosage: 25 MG/ML
     Route: 042
     Dates: start: 20170511
  3. FLUOROURACILO ACCORD [Suspect]
     Active Substance: FLUOROURACIL
     Dosage: 196 UNK
     Route: 042
     Dates: start: 20170511
  4. ACIDO [Concomitant]
     Dosage: UNK
     Dates: start: 20170511

REACTIONS (1)
  - Mixed liver injury [Recovered/Resolved]

NARRATIVE: CASE EVENT DATE: 20171122
